FAERS Safety Report 6023412-1 (Version None)
Quarter: 2008Q4

REPORT INFORMATION
  Report Type: 
  Country: None (occurrence: None)
  Receive Date: 20081226
  Receipt Date: 20081226
  Transmission Date: 20090506
  Serious: Yes (Death)
  Sender: FDA-Public Use
  Company Number: None

PATIENT
  Sex: Female
  Weight: 49.5 kg

DRUGS (2)
  1. ABILIFY [Suspect]
     Indication: DEMENTIA
     Dosage: AS ABOVE
     Dates: start: 20080626, end: 20081020
  2. ABILIFY [Suspect]
     Indication: PSYCHOTIC DISORDER
     Dosage: AS ABOVE
     Dates: start: 20080626, end: 20081020

REACTIONS (1)
  - SEDATION [None]
